FAERS Safety Report 7428524-3 (Version None)
Quarter: 2011Q2

REPORT INFORMATION
  Report Type: 
  Country: None (occurrence: None)
  Receive Date: 20110413
  Receipt Date: 20110329
  Transmission Date: 20111010
  Serious: Yes (Other)
  Sender: FDA-Public Use
  Company Number: FR-SEPTODONT-201100046

PATIENT
  Age: 48 Year
  Sex: Female
  Weight: 65 kg

DRUGS (2)
  1. SEPTOCAINE [Suspect]
     Indication: LOCAL ANAESTHESIA
     Dosage: DENTAL
     Route: 004
     Dates: start: 20101101
  2. ZOLOFT [Concomitant]

REACTIONS (15)
  - FEELING HOT [None]
  - ARRHYTHMIA [None]
  - PRESYNCOPE [None]
  - HEMIPARESIS [None]
  - MEMORY IMPAIRMENT [None]
  - MYOCLONUS [None]
  - PALLOR [None]
  - AUTONOMIC NEUROPATHY [None]
  - DRUG INTERACTION [None]
  - RESPIRATORY DISORDER [None]
  - CARDIOTOXICITY [None]
  - DISTURBANCE IN ATTENTION [None]
  - MUSCLE TWITCHING [None]
  - NEUROMUSCULAR TOXICITY [None]
  - PSEUDOCHOLINESTERASE DEFICIENCY [None]
